FAERS Safety Report 20506447 (Version 2)
Quarter: 2022Q1

REPORT INFORMATION
  Report Type: Spontaneous
  Country: JP (occurrence: JP)
  Receive Date: 20220223
  Receipt Date: 20220310
  Transmission Date: 20220423
  Serious: Yes (Hospitalization, Other)
  Sender: FDA-Public Use
  Company Number: JP-LUNDBECK-DKLU3044420

PATIENT
  Sex: Female
  Weight: 73.4 kg

DRUGS (8)
  1. ESCITALOPRAM OXALATE [Suspect]
     Active Substance: ESCITALOPRAM OXALATE
     Indication: Post-traumatic stress disorder
     Dosage: 10 MG, QD
     Route: 048
     Dates: start: 20190619
  2. DIENOGEST [Suspect]
     Active Substance: DIENOGEST
     Indication: Adenomyosis
     Route: 048
     Dates: start: 20210303, end: 20211101
  3. CYMBALTA [Concomitant]
     Active Substance: DULOXETINE HYDROCHLORIDE
     Indication: Post-traumatic stress disorder
     Dosage: 30 MG, QD
     Route: 048
     Dates: start: 20190711
  4. ARTANE [Concomitant]
     Active Substance: TRIHEXYPHENIDYL HYDROCHLORIDE
     Indication: Post-traumatic stress disorder
     Dosage: 1 MG, QD
     Route: 048
     Dates: start: 20190711
  5. LAMICTAL [Concomitant]
     Active Substance: LAMOTRIGINE
     Indication: Post-traumatic stress disorder
     Dosage: 25 MG, QD
     Route: 048
     Dates: start: 20201110
  6. DAYVIGO [Concomitant]
     Active Substance: LEMBOREXANT
     Indication: Insomnia
     Dosage: 7.5 MG, QD
     Route: 048
     Dates: start: 20210812
  7. ETHINYL ESTRADIOL\NORETHINDRONE [Concomitant]
     Active Substance: ETHINYL ESTRADIOL\NORETHINDRONE
     Indication: Product used for unknown indication
     Route: 048
  8. BROTIZOLAM [Concomitant]
     Active Substance: BROTIZOLAM
     Indication: Insomnia
     Dosage: 0.25 DF, QD
     Route: 048
     Dates: start: 20211104

REACTIONS (3)
  - Intermenstrual bleeding [Recovered/Resolved]
  - Uterine leiomyoma [Recovered/Resolved]
  - Off label use [Unknown]

NARRATIVE: CASE EVENT DATE: 20211001
